FAERS Safety Report 6701584-0 (Version None)
Quarter: 2010Q2

REPORT INFORMATION
  Report Type: 
  Country: None (occurrence: None)
  Receive Date: 20100429
  Receipt Date: 20100415
  Transmission Date: 20101027
  Serious: Yes (Other)
  Sender: FDA-Public Use
  Company Number: US-ELI_LILLY_AND_COMPANY-US201004004026

PATIENT
  Sex: Male

DRUGS (6)
  1. BYETTA [Suspect]
     Indication: TYPE 2 DIABETES MELLITUS
     Dosage: 10 UG, 2/D
     Route: 058
     Dates: start: 20060101
  2. ZOCOR [Concomitant]
  3. ALTACE [Concomitant]
  4. METFORMIN [Concomitant]
  5. GLUCOTROL [Concomitant]
  6. ACTOS [Concomitant]

REACTIONS (2)
  - NEUROENDOCRINE TUMOUR [None]
  - WEIGHT DECREASED [None]
